FAERS Safety Report 13570651 (Version 2)
Quarter: 2017Q2

REPORT INFORMATION
  Report Type: Spontaneous
  Country: IT (occurrence: IT)
  Receive Date: 20170523
  Receipt Date: 20170531
  Transmission Date: 20170830
  Serious: Yes (Hospitalization)
  Sender: FDA-Public Use
  Company Number: IT-ROCHE-1937320

PATIENT
  Age: 86 Year
  Sex: Female

DRUGS (6)
  1. REXTAT [Concomitant]
     Route: 048
  2. ZELBORAF [Suspect]
     Active Substance: VEMURAFENIB
     Indication: MALIGNANT MELANOMA
     Dosage: ^240 MG - FILM-COATED TABLET
     Route: 048
     Dates: start: 20170420, end: 20170429
  3. LOPRESSOR [Concomitant]
     Active Substance: METOPROLOL TARTRATE
     Dosage: ^200 MG PROLONGED-RELEASE TABLETS^
     Route: 048
  4. ADALAT CRONO [Concomitant]
     Active Substance: NIFEDIPINE
     Dosage: ^60 MG MODIFIED-RELEASE TABLETS^
     Route: 048
  5. COTELLIC [Suspect]
     Active Substance: COBIMETINIB
     Indication: MALIGNANT MELANOMA
     Dosage: 20 MG - FILM-COATED TABLET
     Route: 048
     Dates: start: 20170420, end: 20170429
  6. COTAREG [Concomitant]
     Active Substance: HYDROCHLOROTHIAZIDE\VALSARTAN
     Route: 048

REACTIONS (2)
  - Lip oedema [Recovered/Resolved]
  - Urticaria [Recovered/Resolved]

NARRATIVE: CASE EVENT DATE: 20170429
